FAERS Safety Report 4967273-8 (Version None)
Quarter: 2006Q2

REPORT INFORMATION
  Report Type: 
  Country: None (occurrence: None)
  Receive Date: 20060404
  Receipt Date: 20060322
  Transmission Date: 20061013
  Serious: Yes (Other)
  Sender: FDA-Public Use
  Company Number: 163-C5013-06030730

PATIENT
  Age: 74 Year
  Sex: Female
  Weight: 45.9 kg

DRUGS (2)
  1. REVLIMID [Suspect]
     Indication: MULTIPLE MYELOMA
     Dosage: 25 MG, QD ON DAYS 1-21 Q28D, ORAL - SEE IMAGE
     Route: 048
     Dates: start: 20050425, end: 20050509
  2. DEXAMETHASONE [Suspect]
     Indication: MULTIPLE MYELOMA
     Dosage: 40 MG, QD ON DAYS 1-4, 9-12, 17-20 Q28D, ORAL - SEE IMAGE
     Route: 048
     Dates: start: 20050425, end: 20050506

REACTIONS (2)
  - MUSCULAR WEAKNESS [None]
  - TREMOR [None]
